FAERS Safety Report 11378342 (Version 1)
Quarter: 2015Q3

REPORT INFORMATION
  Report Type: Spontaneous
  Country: US (occurrence: US)
  Receive Date: 20150811
  Receipt Date: 20150811
  Transmission Date: 20151125
  Serious: No
  Sender: FDA-Public Use
  Company Number: US-ELI_LILLY_AND_COMPANY-US201301004850

PATIENT
  Sex: Female

DRUGS (13)
  1. PROGESTERONE. [Concomitant]
     Active Substance: PROGESTERONE
  2. LUNESTA [Concomitant]
     Active Substance: ESZOPICLONE
  3. LEVAQUIN [Concomitant]
     Active Substance: LEVOFLOXACIN
  4. WELLBUTRIN [Concomitant]
     Active Substance: BUPROPION HYDROCHLORIDE
  5. CELEBREX [Concomitant]
     Active Substance: CELECOXIB
  6. CIALIS [Suspect]
     Active Substance: TADALAFIL
     Indication: LIBIDO DECREASED
     Dosage: 5 MG, PRN
     Dates: start: 201211
  7. LAMICTAL [Concomitant]
     Active Substance: LAMOTRIGINE
  8. AMBIEN [Concomitant]
     Active Substance: ZOLPIDEM TARTRATE
  9. TOPAMAX [Concomitant]
     Active Substance: TOPIRAMATE
  10. CRESTOR [Concomitant]
     Active Substance: ROSUVASTATIN CALCIUM
  11. AMOXICILLIN. [Concomitant]
     Active Substance: AMOXICILLIN
  12. ESTRADIOL. [Concomitant]
     Active Substance: ESTRADIOL
  13. TESTOSTERONE. [Concomitant]
     Active Substance: TESTOSTERONE

REACTIONS (2)
  - Off label use [Unknown]
  - Flushing [Unknown]
